FAERS Safety Report 5057367-3 (Version None)
Quarter: 2006Q3

REPORT INFORMATION
  Report Type: 
  Country: None (occurrence: None)
  Receive Date: 20060721
  Receipt Date: 20050829
  Transmission Date: 20061208
  Serious: No
  Sender: FDA-Public Use
  Company Number: US-GLAXOSMITHKLINE-A0572228A

PATIENT
  Age: 57 Year
  Sex: Female

DRUGS (10)
  1. AVANDIA [Suspect]
     Dosage: 4MG PER DAY
     Route: 048
     Dates: start: 20050101
  2. NORVASC [Concomitant]
  3. NITROGLYCERIN [Concomitant]
  4. ZELNORM [Concomitant]
  5. PROTONIX [Concomitant]
  6. QUINAPRIL [Concomitant]
  7. LEVOXYL [Concomitant]
  8. ZOLOFT [Concomitant]
  9. COREG [Concomitant]
  10. KLONOPIN [Concomitant]

REACTIONS (2)
  - BLOOD GLUCOSE INCREASED [None]
  - PHARMACEUTICAL PRODUCT COMPLAINT [None]
